FAERS Safety Report 20309124 (Version 1)
Quarter: 2022Q1

REPORT INFORMATION
  Report Type: Spontaneous
  Country: US (occurrence: None)
  Receive Date: 20220106
  Receipt Date: 20220106
  Transmission Date: 20220424
  Serious: No
  Sender: FDA-Public Use
  Company Number: None

PATIENT
  Sex: Female

DRUGS (3)
  1. RASUVO [Suspect]
     Active Substance: METHOTREXATE SODIUM
     Indication: Psoriatic arthropathy
     Dosage: 25MG WEEKLY SUB?
     Route: 058
     Dates: start: 202104
  2. RASUVO [Suspect]
     Active Substance: METHOTREXATE SODIUM
     Indication: Rheumatoid arthritis
  3. RASUVO [Suspect]
     Active Substance: METHOTREXATE SODIUM
     Indication: Ankylosing spondylitis

REACTIONS (3)
  - Joint swelling [None]
  - Arthralgia [None]
  - Condition aggravated [None]
